FAERS Safety Report 9031219 (Version 6)
Quarter: 2014Q1

REPORT INFORMATION
  Report Type: Spontaneous
  Country: US (occurrence: US)
  Receive Date: 20130123
  Receipt Date: 20140220
  Transmission Date: 20141002
  Serious: Yes (Hospitalization, Other)
  Sender: FDA-Public Use
  Company Number: US-009507513-1301USA010636

PATIENT
  Sex: Female
  Weight: 74.38 kg

DRUGS (2)
  1. FOSAMAX [Suspect]
     Indication: OSTEOPOROSIS
     Dosage: 70 MG, QW
     Route: 048
     Dates: start: 20070306, end: 201201
  2. ALENDRONATE SODIUM [Suspect]
     Dosage: 70 MG, QW
     Route: 048
     Dates: start: 20080218

REACTIONS (53)
  - Femur fracture [Unknown]
  - Intramedullary rod insertion [Unknown]
  - Femur fracture [Recovered/Resolved]
  - Open reduction of fracture [Unknown]
  - Incision site infection [Recovered/Resolved]
  - Humerus fracture [Unknown]
  - Leukaemia [Unknown]
  - Spinal compression fracture [Unknown]
  - Pain [Unknown]
  - Renal failure [Unknown]
  - Clavicle fracture [Unknown]
  - Haemorrhagic anaemia [Unknown]
  - Removal of internal fixation [Unknown]
  - Radius fracture [Recovering/Resolving]
  - Osteoarthritis [Unknown]
  - Ankle fracture [Unknown]
  - Bone neoplasm [Unknown]
  - Fibula fracture [Recovered/Resolved]
  - Osteoarthritis [Unknown]
  - Intervertebral disc degeneration [Unknown]
  - Spinal osteoarthritis [Unknown]
  - Extraskeletal ossification [Unknown]
  - Vertebroplasty [Unknown]
  - Spinal compression fracture [Unknown]
  - Calcinosis [Unknown]
  - Osteoarthritis [Unknown]
  - Fall [Unknown]
  - Sacroiliitis [Unknown]
  - Type 2 diabetes mellitus [Unknown]
  - Hypertension [Unknown]
  - Hyperlipidaemia [Unknown]
  - Asthma [Unknown]
  - Depression [Unknown]
  - Anxiety [Unknown]
  - Tumour excision [Unknown]
  - Carpal tunnel decompression [Unknown]
  - Cataract operation [Unknown]
  - Weight increased [Unknown]
  - Ecchymosis [Unknown]
  - Pain [Not Recovered/Not Resolved]
  - Spinal compression fracture [Unknown]
  - Pneumonia [Unknown]
  - Fibromyalgia [Unknown]
  - Lipomatosis [Unknown]
  - Ulcer [Unknown]
  - Osteopenia [Unknown]
  - Osteoarthritis [Unknown]
  - Bronchiolitis [Unknown]
  - Arteriosclerosis [Unknown]
  - Osteomyelitis [Unknown]
  - Confusional state [Unknown]
  - Incisional drainage [Unknown]
  - Oedema peripheral [Unknown]
